FAERS Safety Report 25245702 (Version 2)
Quarter: 2025Q2

REPORT INFORMATION
  Report Type: Spontaneous
  Country: CO (occurrence: CO)
  Receive Date: 20250428
  Receipt Date: 20250506
  Transmission Date: 20250716
  Serious: Yes (Other)
  Sender: REGENERON
  Company Number: CO-BAYER-2025A057062

PATIENT
  Age: 65 Year
  Sex: Female

DRUGS (2)
  1. EYLEA [Suspect]
     Active Substance: AFLIBERCEPT
     Indication: Macular degeneration
     Route: 031
     Dates: start: 20240214, end: 20240214
  2. EYLEA [Suspect]
     Active Substance: AFLIBERCEPT
     Dates: start: 202401, end: 202502

REACTIONS (3)
  - Blindness unilateral [Not Recovered/Not Resolved]
  - Visual impairment [Not Recovered/Not Resolved]
  - Vision blurred [Not Recovered/Not Resolved]

NARRATIVE: CASE EVENT DATE: 20240314
